FAERS Safety Report 16240000 (Version 1)
Quarter: 2019Q2

REPORT INFORMATION
  Report Type: Spontaneous
  Country: US (occurrence: US)
  Receive Date: 20190425
  Receipt Date: 20190425
  Transmission Date: 20190711
  Serious: No
  Sender: FDA-Public Use
  Company Number: US-ALLERGAN-1838880US

PATIENT
  Age: 46 Year
  Sex: Female

DRUGS (1)
  1. TRIPTORELIN PAMOATE - BP [Suspect]
     Active Substance: TRIPTORELIN PAMOATE
     Indication: PRODUCT USED FOR UNKNOWN INDICATION
     Dosage: UNK, SINGLE
     Route: 065
     Dates: start: 20180426, end: 20180426

REACTIONS (3)
  - Accidental exposure to product [Unknown]
  - Injury associated with device [Unknown]
  - Puncture site haemorrhage [Unknown]

NARRATIVE: CASE EVENT DATE: 20180426
